FAERS Safety Report 18717328 (Version 3)
Quarter: 2023Q2

REPORT INFORMATION
  Report Type: Spontaneous
  Country: BR (occurrence: BR)
  Receive Date: 20210108
  Receipt Date: 20230628
  Transmission Date: 20230721
  Serious: Yes (Hospitalization, Other)
  Sender: FDA-Public Use
  Company Number: NVSC2020BR346948

PATIENT
  Age: 97 Year
  Sex: Male

DRUGS (2)
  1. LEUPROLIDE ACETATE [Suspect]
     Active Substance: LEUPROLIDE ACETATE
     Indication: Prostate cancer
     Dosage: 7.5 MG, QMO (STARTED 10 YEARS AGO)
     Route: 030
     Dates: start: 200912
  2. SERTRALINE [Concomitant]
     Active Substance: SERTRALINE HYDROCHLORIDE
     Indication: Antidepressant therapy
     Dosage: 1 DF, QD (STARTED 3 YEAR AGO)
     Route: 048

REACTIONS (8)
  - Hypertension [Recovered/Resolved]
  - Cerebrovascular accident [Recovered/Resolved with Sequelae]
  - Hypertension [Not Recovered/Not Resolved]
  - Blindness [Unknown]
  - Product dose omission issue [Not Recovered/Not Resolved]
  - Walking disability [Not Recovered/Not Resolved]
  - Aphasia [Recovering/Resolving]
  - Inappropriate schedule of product administration [Unknown]

NARRATIVE: CASE EVENT DATE: 20200801
